FAERS Safety Report 4441678-6 (Version None)
Quarter: 2004Q3

REPORT INFORMATION
  Report Type: 
  Country: None (occurrence: None)
  Receive Date: 20040907
  Receipt Date: 20040902
  Transmission Date: 20050211
  Serious: Yes (Death)
  Sender: FDA-Public Use
  Company Number: BE-JNJFOC-20040901404

PATIENT
  Age: 7 Month
  Sex: Female

DRUGS (2)
  1. PROPULSID [Suspect]
     Route: 049
     Dates: start: 20040406, end: 20040802
  2. LOSEC [Concomitant]
     Route: 049
     Dates: start: 20040404, end: 20040802

REACTIONS (5)
  - BLOOD CALCIUM INCREASED [None]
  - BLOOD MAGNESIUM INCREASED [None]
  - BLOOD POTASSIUM INCREASED [None]
  - CARDIO-RESPIRATORY ARREST [None]
  - SUDDEN INFANT DEATH SYNDROME [None]
